FAERS Safety Report 18121956 (Version 2)
Quarter: 2022Q1

REPORT INFORMATION
  Report Type: Spontaneous
  Country: CH (occurrence: CH)
  Receive Date: 20200807
  Receipt Date: 20220202
  Transmission Date: 20220424
  Serious: Yes (Life-Threatening, Other)
  Sender: FDA-Public Use
  Company Number: CH-SM-2020-14774

PATIENT
  Age: 65 Year
  Sex: Male

DRUGS (21)
  1. METOPROLOL SUCCINATE [Suspect]
     Active Substance: METOPROLOL SUCCINATE
     Dosage: 0.5-0-0.5
     Route: 048
     Dates: start: 20200526, end: 20200603
  2. METOPROLOL SUCCINATE [Suspect]
     Active Substance: METOPROLOL SUCCINATE
     Dosage: 100 MILLIGRAM DAILY; 1-0-1
     Route: 048
     Dates: start: 20200603, end: 20200607
  3. METOPROLOL SUCCINATE [Suspect]
     Active Substance: METOPROLOL SUCCINATE
     Route: 048
     Dates: start: 20200608, end: 20200624
  4. BACTRIM [Suspect]
     Active Substance: SULFAMETHOXAZOLE\TRIMETHOPRIM
     Dosage: TMP/SFH AT 160/800MG: 1-1-1
     Route: 048
     Dates: start: 20200611, end: 20200614
  5. BACTRIM [Suspect]
     Active Substance: SULFAMETHOXAZOLE\TRIMETHOPRIM
     Dosage: DOSING REGIMEN: 1-0.5-0.5
     Route: 048
     Dates: start: 20200614, end: 20200630
  6. CORDARONE [Suspect]
     Active Substance: AMIODARONE HYDROCHLORIDE
     Dosage: 200 MILLIGRAM DAILY; 1-0-0-0; ?04-JUN-2020 TO 13-JUN-2020: PAUSE
     Route: 048
     Dates: start: 20200419, end: 20200603
  7. CORDARONE [Suspect]
     Active Substance: AMIODARONE HYDROCHLORIDE
     Dosage: 2-1-2-0
     Route: 048
     Dates: start: 20200614, end: 20200615
  8. CORDARONE [Suspect]
     Active Substance: AMIODARONE HYDROCHLORIDE
     Route: 048
     Dates: start: 20200615, end: 20200625
  9. PHENPROCOUMON [Concomitant]
     Active Substance: PHENPROCOUMON
     Dosage: IN ACCORDANCE WITH THE INR DOSAGE
     Route: 048
     Dates: start: 20200614
  10. ASPIRIN [Concomitant]
     Active Substance: ASPIRIN
     Dosage: 100 MILLIGRAM DAILY; 1-0-0-0?PERMANENT THERAPY
     Route: 048
     Dates: start: 20200614
  11. ROSUVASTATIN [Concomitant]
     Active Substance: ROSUVASTATIN
     Dosage: 20 MILLIGRAM DAILY; PERMANENT THERAPY?0-1-0-0
     Route: 048
     Dates: start: 20200614
  12. PREGABALIN [Concomitant]
     Active Substance: PREGABALIN
     Dosage: 300 MILLIGRAM DAILY; PERMANENT THERAPY?1-0-1-0
     Route: 048
     Dates: start: 20200614
  13. PANTOPRAZOLE SODIUM [Concomitant]
     Active Substance: PANTOPRAZOLE SODIUM
     Dosage: 40 MILLIGRAM DAILY; PERMANENT THERAPY?1-0-0-0
     Route: 048
  14. DAFALGAN [Concomitant]
     Active Substance: ACETAMINOPHEN
     Dosage: 4000 MILLIGRAM DAILY; PERMANENT THERAPY?1-1-1-1
     Route: 048
  15. PALLADONE [Concomitant]
     Active Substance: HYDROMORPHONE HYDROCHLORIDE
     Dosage: 8 MILLIGRAM DAILY; 1-0-1-0
     Route: 048
  16. METFORMIN [Concomitant]
     Active Substance: METFORMIN HYDROCHLORIDE
  17. LISINOPRIL [Concomitant]
     Active Substance: LISINOPRIL
  18. TORSEMIDE [Concomitant]
     Active Substance: TORSEMIDE
  19. LASIX [Concomitant]
     Active Substance: FUROSEMIDE
     Dates: start: 20200610, end: 20200618
  20. METOLAZONE [Concomitant]
     Active Substance: METOLAZONE
     Dates: start: 20200614, end: 20200617
  21. AMLODIPINE [Concomitant]
     Active Substance: AMLODIPINE BESYLATE
     Dates: start: 20200517, end: 20200617

REACTIONS (3)
  - Acute kidney injury [Recovering/Resolving]
  - Hyperkalaemia [Recovered/Resolved]
  - Bradycardia [Recovered/Resolved]

NARRATIVE: CASE EVENT DATE: 20200612
